FAERS Safety Report 18117110 (Version 1)
Quarter: 2020Q3

REPORT INFORMATION
  Report Type: Other
  Country: US (occurrence: US)
  Receive Date: 20200806
  Receipt Date: 20200806
  Transmission Date: 20201103
  Serious: Yes (Other)
  Sender: FDA-Public Use
  Company Number: US-APPCO PHARMA LLC-2088226

PATIENT
  Age: 64 Year
  Sex: Female

DRUGS (1)
  1. CLINDAMYCIN PALMITATE HYDROCHLORIDE. [Suspect]
     Active Substance: CLINDAMYCIN PALMITATE HYDROCHLORIDE
     Indication: OSTEONECROSIS OF JAW
     Route: 065

REACTIONS (2)
  - Drug ineffective [Unknown]
  - Osteonecrosis of jaw [Recovered/Resolved]
